FAERS Safety Report 17862256 (Version 2)
Quarter: 2020Q2

REPORT INFORMATION
  Report Type: Spontaneous
  Country: US (occurrence: US)
  Receive Date: 20200604
  Receipt Date: 20200625
  Transmission Date: 20200714
  Serious: No
  Sender: FDA-Public Use
  Company Number: US-JNJFOC-20200521656

PATIENT
  Sex: Male
  Weight: 78.09 kg

DRUGS (1)
  1. ZYRTEC [Suspect]
     Active Substance: CETIRIZINE HYDROCHLORIDE
     Indication: MULTIPLE ALLERGIES
     Dosage: 1 TABLET 1 TABLET A DAY; DATE OF LAST ADMINISTRATION: 14-MAY-2020
     Route: 048
     Dates: start: 20200425

REACTIONS (1)
  - Drug ineffective [Unknown]
